FAERS Safety Report 9902230 (Version 4)
Quarter: 2017Q2

REPORT INFORMATION
  Report Type: Spontaneous
  Country: CH (occurrence: CH)
  Receive Date: 20140217
  Receipt Date: 20170412
  Transmission Date: 20170830
  Serious: Yes (Hospitalization)
  Sender: FDA-Public Use
  Company Number: CH-JNJFOC-20140204074

PATIENT
  Age: 76 Year
  Sex: Female

DRUGS (32)
  1. DIFLUCAN [Concomitant]
     Active Substance: FLUCONAZOLE
     Route: 065
     Dates: start: 20140121
  2. BORRAZA-G [Concomitant]
     Active Substance: LIDOCAINE\TRIBENOSIDE
     Route: 061
  3. PREDNISOLONE. [Suspect]
     Active Substance: PREDNISOLONE
     Indication: CHRONIC LYMPHOCYTIC LEUKAEMIA
     Dosage: REGIMEN #1
     Route: 048
     Dates: start: 20140121
  4. FRAGMIN [Concomitant]
     Active Substance: DALTEPARIN SODIUM
     Route: 058
     Dates: start: 20140120, end: 20140125
  5. METAMUCIL [Concomitant]
     Active Substance: PLANTAGO SEED
     Route: 065
     Dates: start: 20091211, end: 20140125
  6. NEXIUM [Concomitant]
     Active Substance: ESOMEPRAZOLE MAGNESIUM
     Route: 065
     Dates: start: 20140122, end: 20140125
  7. ACIDUM FOLICUM [Concomitant]
     Active Substance: FOLIC ACID
     Route: 048
     Dates: start: 20111121, end: 20140125
  8. LISINOPRIL. [Concomitant]
     Active Substance: LISINOPRIL
     Route: 048
     Dates: start: 20140121
  9. EFFORTIL [Concomitant]
     Active Substance: ETILEFRINE HYDROCHLORIDE
     Route: 065
     Dates: start: 20110826
  10. BETASERC [Concomitant]
     Active Substance: BETAHISTINE
     Route: 065
     Dates: start: 20140121
  11. PANTOZOL [Concomitant]
     Active Substance: PANTOPRAZOLE SODIUM
     Route: 065
     Dates: start: 20091211
  12. PREDNISOLONE. [Suspect]
     Active Substance: PREDNISOLONE
     Indication: CHRONIC LYMPHOCYTIC LEUKAEMIA
     Dosage: CYCLE 1, DAY 1 AND 2, THEN EVERY CYCLE ON DAY 1
     Route: 048
     Dates: start: 20140121, end: 20140429
  13. SPIRICORT [Concomitant]
     Active Substance: PREDNISOLONE
     Route: 048
     Dates: start: 20140120
  14. PANTOZOL [Concomitant]
     Active Substance: PANTOPRAZOLE SODIUM
     Route: 065
     Dates: start: 20120717, end: 20140121
  15. MOVICOL [Concomitant]
     Active Substance: POLYETHYLENE GLYCOL 3350\POTASSIUM CHLORIDE\SODIUM BICARBONATE\SODIUM CHLORIDE
     Route: 048
  16. TRANSIPEG [Concomitant]
     Active Substance: POLYETHYLENE GLYCOL 3350
     Route: 065
  17. VINCRISTIN [Suspect]
     Active Substance: VINCRISTINE
     Indication: CHRONIC LYMPHOCYTIC LEUKAEMIA
     Dosage: REGIMEN #1
     Route: 065
  18. KYTRIL [Concomitant]
     Active Substance: GRANISETRON HYDROCHLORIDE
     Indication: PREMEDICATION
     Route: 048
     Dates: start: 20140121
  19. VALTREX [Concomitant]
     Active Substance: VALACYCLOVIR HYDROCHLORIDE
     Route: 048
     Dates: start: 20140121
  20. SERESTA [Concomitant]
     Active Substance: OXAZEPAM
     Route: 048
     Dates: start: 20140121, end: 20140124
  21. METAMUCIL [Concomitant]
     Active Substance: PLANTAGO SEED
     Route: 065
     Dates: start: 20140218
  22. OBINUTUZUMAB [Suspect]
     Active Substance: OBINUTUZUMAB
     Indication: CHRONIC LYMPHOCYTIC LEUKAEMIA
     Dosage: REGIMEN #1
     Route: 042
     Dates: start: 20140121
  23. CYCLOPHOSPHAMIDE. [Suspect]
     Active Substance: CYCLOPHOSPHAMIDE
     Indication: CHRONIC LYMPHOCYTIC LEUKAEMIA
     Dosage: REGIMEN #1
     Route: 065
  24. DAFALGAN [Concomitant]
     Active Substance: ACETAMINOPHEN
     Dates: start: 20140121
  25. PASPERTIN [Concomitant]
     Active Substance: METOCLOPRAMIDE HYDROCHLORIDE
     Route: 065
     Dates: start: 20140121
  26. TAVEGYL [Concomitant]
     Active Substance: CLEMASTINE FUMARATE
     Route: 065
     Dates: start: 20140121
  27. DOXORUBICIN HYDROCLORIDE [Suspect]
     Active Substance: DOXORUBICIN HYDROCHLORIDE
     Indication: CHRONIC LYMPHOCYTIC LEUKAEMIA
     Dosage: REGIMEN #1
     Route: 042
  28. BENDAMUSTINE HYDROCHLORIDE. [Suspect]
     Active Substance: BENDAMUSTINE HYDROCHLORIDE
     Indication: CHRONIC LYMPHOCYTIC LEUKAEMIA
     Route: 042
     Dates: start: 20140121
  29. ASPIRIN CARDIO [Concomitant]
     Active Substance: ASPIRIN
     Route: 048
     Dates: start: 20140121
  30. BACTRIM [Concomitant]
     Active Substance: SULFAMETHOXAZOLE\TRIMETHOPRIM
     Route: 048
     Dates: start: 20140121
  31. CALCIMAGON-D3 [Concomitant]
     Active Substance: CALCIUM\CHOLECALCIFEROL
     Route: 048
     Dates: start: 20111122
  32. CIPROFLOXACIN. [Concomitant]
     Active Substance: CIPROFLOXACIN
     Route: 048
     Dates: start: 20140321

REACTIONS (2)
  - Product use in unapproved indication [Unknown]
  - Tumour lysis syndrome [Recovered/Resolved]

NARRATIVE: CASE EVENT DATE: 20140122
